FAERS Safety Report 9752981 (Version 1)
Quarter: 2013Q4

REPORT INFORMATION
  Report Type: Report from Study
  Country: US (occurrence: US)
  Receive Date: 20131213
  Receipt Date: 20131213
  Transmission Date: 20140711
  Serious: Yes (Other)
  Sender: FDA-Public Use
  Company Number: US-JNJFOC-20131204932

PATIENT
  Age: 52 Year
  Sex: Female

DRUGS (14)
  1. REMICADE [Suspect]
     Indication: RHEUMATOID ARTHRITIS
     Route: 042
     Dates: start: 201001
  2. REMICADE [Suspect]
     Indication: RHEUMATOID ARTHRITIS
     Route: 042
  3. REMICADE [Suspect]
     Indication: RHEUMATOID ARTHRITIS
     Route: 042
  4. PAXIL [Concomitant]
     Indication: ELEVATED MOOD
     Route: 048
     Dates: start: 2011
  5. FOLIC ACID [Concomitant]
     Route: 048
  6. METHOTREXATE [Concomitant]
     Indication: RHEUMATOID ARTHRITIS
     Route: 065
  7. VITAMIN C [Concomitant]
     Dosage: ON OCCASION
     Route: 048
  8. TRAZODONE [Concomitant]
     Indication: SLEEP DISORDER
     Dosage: 150MG-200MG/DAY
     Route: 048
  9. AMOXICILLIN [Concomitant]
     Indication: THROAT IRRITATION
     Route: 048
     Dates: start: 20131205
  10. VITAMIN B6 [Concomitant]
     Indication: NUTRITIONAL SUPPLEMENTATION
     Route: 048
     Dates: start: 2013
  11. TYLENOL [Concomitant]
     Indication: PREMEDICATION
     Route: 048
  12. BENADRYL [Concomitant]
     Indication: PREMEDICATION
     Route: 048
  13. ASPIRIN [Concomitant]
     Route: 048
     Dates: start: 20131029
  14. LEVOTHYROXINE [Concomitant]
     Indication: THYROID DISORDER
     Route: 048
     Dates: start: 20131029

REACTIONS (5)
  - Infusion related reaction [Recovered/Resolved]
  - Choking sensation [Recovered/Resolved]
  - Bunion [Recovered/Resolved]
  - Drug ineffective [Recovered/Resolved]
  - Decreased appetite [Unknown]
